FAERS Safety Report 16737457 (Version 1)
Quarter: 2019Q3

REPORT INFORMATION
  Report Type: Spontaneous
  Country: FR (occurrence: FR)
  Receive Date: 20190823
  Receipt Date: 20190823
  Transmission Date: 20191005
  Serious: Yes (Other)
  Sender: FDA-Public Use
  Company Number: FR-INDIVIOR US-INDV-121210-2019

PATIENT
  Age: 38 Year
  Sex: Female

DRUGS (1)
  1. SUBUTEX [Suspect]
     Active Substance: BUPRENORPHINE HYDROCHLORIDE
     Indication: PRODUCT SUBSTITUTION
     Dosage: 12 MILLIGRAM, QD
     Route: 065
     Dates: start: 2009

REACTIONS (1)
  - Drug therapeutic incompatibility [Recovered/Resolved]

NARRATIVE: CASE EVENT DATE: 201904
